FAERS Safety Report 4319193-X (Version None)
Quarter: 2004Q1

REPORT INFORMATION
  Report Type: 
  Country: None (occurrence: None)
  Receive Date: 20040315
  Receipt Date: 20040102
  Transmission Date: 20041129
  Serious: Yes (Hospitalization, Other)
  Sender: FDA-Public Use
  Company Number: 2003190071US

PATIENT
  Age: 87 Year
  Sex: Female
  Weight: 53.1 kg

DRUGS (9)
  1. BEXTRA [Suspect]
     Indication: SPINAL COLUMN STENOSIS
     Dosage: 20 MG, QD, ORAL
     Route: 048
  2. PLAVIX [Suspect]
     Dosage: 75 MG, QD,
  3. ACETYLSALICYLIC ACID SRT [Suspect]
     Dosage: 81 MG, QD,
  4. DIGOXIN [Concomitant]
  5. SYNTHROID [Concomitant]
  6. ATENOLOL [Concomitant]
  7. TRICOR [Concomitant]
  8. DETROL (TOLTERODONE-L-TARTRATE) [Concomitant]
  9. DIOVAN HCT (VALSARTAN) [Concomitant]

REACTIONS (1)
  - GASTROINTESTINAL HAEMORRHAGE [None]
